FAERS Safety Report 6670019-9 (Version None)
Quarter: 2010Q2

REPORT INFORMATION
  Report Type: 
  Country: None (occurrence: None)
  Receive Date: 20100406
  Receipt Date: 20100203
  Transmission Date: 20101027
  Serious: No
  Sender: FDA-Public Use
  Company Number: US-ALLERGAN-1001417US

PATIENT
  Sex: Female

DRUGS (3)
  1. LATISSE [Suspect]
     Indication: GROWTH OF EYELASHES
     Dosage: 1 GTT, QHS
     Route: 061
     Dates: start: 20091201
  2. LIPITOR [Concomitant]
  3. NEXIUM [Concomitant]

REACTIONS (2)
  - ERYTHEMA OF EYELID [None]
  - SKIN HYPERPIGMENTATION [None]
